FAERS Safety Report 17816101 (Version 3)
Quarter: 2020Q2

REPORT INFORMATION
  Report Type: Spontaneous
  Country: US (occurrence: US)
  Receive Date: 20200522
  Receipt Date: 20200609
  Transmission Date: 20200714
  Serious: No
  Sender: FDA-Public Use
  Company Number: US-SUNOVION-2020SUN001540

PATIENT
  Age: 61 Year
  Sex: Female

DRUGS (1)
  1. LONHALA MAGNAIR [Suspect]
     Active Substance: GLYCOPYRROLATE
     Indication: CHRONIC OBSTRUCTIVE PULMONARY DISEASE
     Dosage: 25 ?G/1 ML, BID (60 VIALS, 30 DAYS)
     Route: 055

REACTIONS (10)
  - Chronic obstructive pulmonary disease [Not Recovered/Not Resolved]
  - Bronchitis [Unknown]
  - Nasal pruritus [Unknown]
  - Wheezing [Unknown]
  - Dyspnoea [Unknown]
  - Product dose omission [Unknown]
  - Expired product administered [Unknown]
  - Off label use [Unknown]
  - Eye pruritus [Unknown]
  - Rubber sensitivity [Unknown]
